FAERS Safety Report 4898258-8 (Version None)
Quarter: 2006Q1

REPORT INFORMATION
  Report Type: 
  Country: None (occurrence: None)
  Receive Date: 20060201
  Receipt Date: 20060112
  Transmission Date: 20060701
  Serious: Yes (Hospitalization)
  Sender: FDA-Public Use
  Company Number: AU-MERCK-0601AUS00173

PATIENT
  Age: 55 Year
  Sex: Female
  Weight: 100 kg

DRUGS (3)
  1. FOSAMAX [Suspect]
     Indication: OSTEOPOROSIS
     Route: 048
     Dates: start: 19970101
  2. LEVOTHYROXINE SODIUM [Concomitant]
     Indication: BASEDOW'S DISEASE
     Route: 065
     Dates: start: 19970101
  3. LEVOTHYROXINE SODIUM [Concomitant]
     Route: 065
     Dates: start: 19970101

REACTIONS (3)
  - INFLAMMATION [None]
  - MYOCARDIAL INFARCTION [None]
  - WEIGHT INCREASED [None]
